FAERS Safety Report 23224133 (Version 1)
Quarter: 2023Q4

REPORT INFORMATION
  Report Type: Report from Study
  Country: CA (occurrence: IN)
  Receive Date: 20231124
  Receipt Date: 20231124
  Transmission Date: 20240110
  Serious: Yes (Death)
  Sender: FDA-Public Use
  Company Number: CA-CHIESI-2023CHF06273

PATIENT
  Age: 72 Year
  Sex: Female
  Weight: 41.4 kg

DRUGS (2)
  1. DEFERIPRONE [Suspect]
     Active Substance: DEFERIPRONE
     Indication: Myelodysplastic syndrome
     Dosage: 3000 MILLIGRAM, QD
     Route: 048
     Dates: start: 20221203
  2. DEFERIPRONE [Suspect]
     Active Substance: DEFERIPRONE
     Indication: Off label use

REACTIONS (3)
  - Death [Fatal]
  - Off label use [Recovered/Resolved]
  - Off label use [Recovered/Resolved]

NARRATIVE: CASE EVENT DATE: 20221203
